FAERS Safety Report 19179196 (Version 1)
Quarter: 2021Q2

REPORT INFORMATION
  Report Type: Spontaneous
  Country: EG (occurrence: EG)
  Receive Date: 20210426
  Receipt Date: 20210426
  Transmission Date: 20210717
  Serious: Yes (Hospitalization)
  Sender: FDA-Public Use
  Company Number: EG-HIKMA PHARMACEUTICALS USA INC.-EG-H14001-21-01999

PATIENT
  Age: 63 Year
  Sex: Female

DRUGS (6)
  1. UTORAL [Suspect]
     Active Substance: FLUOROURACIL
     Indication: METASTASES TO LIVER
  2. UTORAL [Suspect]
     Active Substance: FLUOROURACIL
     Indication: ADENOCARCINOMA OF COLON
     Route: 041
     Dates: start: 202101
  3. IRINOTECAN [Suspect]
     Active Substance: IRINOTECAN
     Indication: METASTASES TO LIVER
  4. IRINOTECAN [Suspect]
     Active Substance: IRINOTECAN
     Indication: ADENOCARCINOMA OF COLON
     Route: 041
     Dates: start: 202101
  5. CALCIUM LEUCOVORIN [Suspect]
     Active Substance: LEUCOVORIN CALCIUM
     Indication: ADENOCARCINOMA OF COLON
     Route: 041
     Dates: start: 202101
  6. CALCIUM LEUCOVORIN [Suspect]
     Active Substance: LEUCOVORIN CALCIUM
     Indication: METASTASES TO LIVER

REACTIONS (1)
  - Blood pressure increased [Unknown]

NARRATIVE: CASE EVENT DATE: 20210217
